FAERS Safety Report 22314047 (Version 1)
Quarter: 2023Q2

REPORT INFORMATION
  Report Type: Spontaneous
  Country: US (occurrence: None)
  Receive Date: 20230511
  Receipt Date: 20230511
  Transmission Date: 20230721
  Serious: Yes (Hospitalization)
  Sender: FDA-Public Use
  Company Number: None

PATIENT
  Sex: Male

DRUGS (1)
  1. CABENUVA [Suspect]
     Active Substance: CABOTEGRAVIR\RILPIVIRINE
     Indication: HIV infection
     Dosage: 600/900MG EVERY2MONTHS IM?
     Route: 030
     Dates: start: 20230208, end: 20230511

REACTIONS (3)
  - Gait inability [None]
  - Therapy cessation [None]
  - Adverse reaction [None]
